FAERS Safety Report 4827526-0 (Version None)
Quarter: 2005Q4

REPORT INFORMATION
  Report Type: 
  Country: None (occurrence: None)
  Receive Date: 20051114
  Receipt Date: 20051020
  Transmission Date: 20060501
  Serious: Yes (Other)
  Sender: FDA-Public Use
  Company Number: PHBS2005NO15832

PATIENT
  Age: 21 Year

DRUGS (1)
  1. RITALIN [Suspect]
     Route: 065

REACTIONS (1)
  - CARDIOMYOPATHY [None]
